FAERS Safety Report 6839385-5 (Version None)
Quarter: 2010Q3

REPORT INFORMATION
  Report Type: 
  Country: None (occurrence: None)
  Receive Date: 20100714
  Receipt Date: 20100708
  Transmission Date: 20110219
  Serious: Yes (Disabling, Other)
  Sender: FDA-Public Use
  Company Number: CH-BRACCO-000037

PATIENT
  Age: 20 Year
  Sex: Male

DRUGS (7)
  1. OMNISCAN [Suspect]
     Indication: ANGIOGRAM
     Dates: start: 20010417, end: 20010417
  2. OMNISCAN [Suspect]
     Indication: RENAL SCAN
     Dates: start: 20000921, end: 20000921
  3. OMNISCAN [Suspect]
     Dates: start: 20000822, end: 20000822
  4. OMNISCAN [Suspect]
     Dates: start: 20001123, end: 20001123
  5. OMNISCAN [Suspect]
     Dates: start: 20010410, end: 20010410
  6. PROHANCE [Suspect]
     Indication: RENAL SCAN
     Dates: start: 20000811, end: 20000811
  7. PROHANCE [Suspect]
     Indication: NUCLEAR MAGNETIC RESONANCE IMAGING
     Dates: start: 20000904, end: 20000904

REACTIONS (1)
  - NEPHROGENIC SYSTEMIC FIBROSIS [None]
